FAERS Safety Report 14917486 (Version 1)
Quarter: 2018Q2

REPORT INFORMATION
  Report Type: Spontaneous
  Country: FR (occurrence: FR)
  Receive Date: 20180521
  Receipt Date: 20180521
  Transmission Date: 20180711
  Serious: Yes (Other)
  Sender: FDA-Public Use
  Company Number: FR-MERCK KGAA-2048094

PATIENT
  Age: 46 Year
  Sex: Female

DRUGS (1)
  1. NOVOTHYROX [Suspect]
     Active Substance: LEVOTHYROXINE SODIUM
     Indication: HYPOTHYROIDISM

REACTIONS (14)
  - Pain [None]
  - Gait disturbance [None]
  - Impaired work ability [None]
  - Somnolence [None]
  - Hypothyroidism [None]
  - Vitamin D decreased [None]
  - Obesity [None]
  - C-reactive protein increased [None]
  - Gamma-glutamyltransferase increased [None]
  - Fatigue [None]
  - Fear [None]
  - Asthenia [None]
  - Crying [None]
  - Threat of redundancy [None]

NARRATIVE: CASE EVENT DATE: 2017
